FAERS Safety Report 10478152 (Version 1)
Quarter: 2014Q3

REPORT INFORMATION
  Report Type: Spontaneous
  Country: US (occurrence: US)
  Receive Date: 20140926
  Receipt Date: 20140926
  Transmission Date: 20150326
  Serious: No
  Sender: FDA-Public Use
  Company Number: US-PFIZER INC-2014265703

PATIENT
  Age: 37 Year
  Sex: Male
  Weight: 113.38 kg

DRUGS (1)
  1. GABAPENTIN. [Suspect]
     Active Substance: GABAPENTIN
     Indication: SCIATICA
     Dosage: 800 MG, 3X/DAY
     Route: 048
     Dates: start: 2012, end: 201408

REACTIONS (1)
  - Drug ineffective for unapproved indication [Unknown]
